FAERS Safety Report 12302682 (Version 1)
Quarter: 2016Q2

REPORT INFORMATION
  Report Type: Spontaneous
  Country: US (occurrence: US)
  Receive Date: 20160425
  Receipt Date: 20160425
  Transmission Date: 20160815
  Serious: No
  Sender: FDA-Public Use
  Company Number: US-SA-2016SA033945

PATIENT
  Age: 75 Year
  Sex: Female

DRUGS (2)
  1. LOVENOX [Suspect]
     Active Substance: ENOXAPARIN SODIUM
     Indication: THROMBOSIS PROPHYLAXIS
     Dosage: 40MG/0.4ML SYRINGE?FREQUENCY: ONCE EVERY MORNING FOR 30 DAYS
     Route: 065
     Dates: start: 20160118
  2. LOVENOX [Suspect]
     Active Substance: ENOXAPARIN SODIUM
     Indication: SURGERY
     Dosage: 40MG/0.4ML SYRINGE?FREQUENCY: ONCE EVERY MORNING FOR 30 DAYS
     Route: 065
     Dates: start: 20160118

REACTIONS (2)
  - Abdominal pain upper [Not Recovered/Not Resolved]
  - Back pain [Not Recovered/Not Resolved]
